FAERS Safety Report 25680457 (Version 1)
Quarter: 2025Q3

REPORT INFORMATION
  Report Type: Spontaneous
  Country: EU (occurrence: EU)
  Receive Date: 20250814
  Receipt Date: 20250814
  Transmission Date: 20251020
  Serious: Yes (Disabling)
  Sender: GLAXOSMITHKLINE
  Company Number: None

PATIENT
  Age: 66 Year
  Sex: Female
  Weight: 53 kg

DRUGS (2)
  1. FLUTICASONE FUROATE [Suspect]
     Active Substance: FLUTICASONE FUROATE
     Indication: Rhinitis
     Dosage: 2 DF, QD (FIRST USE - 1 PUFF IN EACH NOSTRIL ONCE A DAY (AT LYING DOWN) - PATIENT MADE 3 ADMINISTRATIONS)
  2. FLUTICASONE FUROATE [Suspect]
     Active Substance: FLUTICASONE FUROATE

REACTIONS (3)
  - Vomiting [Recovered/Resolved]
  - Presyncope [Recovered/Resolved]
  - Malaise [Recovered/Resolved]

NARRATIVE: CASE EVENT DATE: 20250724
